FAERS Safety Report 11877279 (Version 16)
Quarter: 2020Q2

REPORT INFORMATION
  Report Type: Spontaneous
  Country: US (occurrence: US)
  Receive Date: 20151229
  Receipt Date: 20200520
  Transmission Date: 20200713
  Serious: Yes (Hospitalization, Other)
  Sender: FDA-Public Use
  Company Number: US-ACTELION PHARMACEUTICALS US, INC.-A-US2015-129168

PATIENT
  Age: 81 Year
  Sex: Female
  Weight: 54.42 kg

DRUGS (8)
  1. ADCIRCA [Concomitant]
     Active Substance: TADALAFIL
     Dosage: UNK
     Route: 065
  2. ADCIRCA [Concomitant]
     Active Substance: TADALAFIL
     Dosage: UNK
     Route: 065
     Dates: start: 20160322
  3. ADEMPAS [Concomitant]
     Active Substance: RIOCIGUAT
  4. DILTIAZEM. [Concomitant]
     Active Substance: DILTIAZEM
  5. OPSUMIT [Suspect]
     Active Substance: MACITENTAN
     Indication: PULMONARY ARTERIAL HYPERTENSION
     Dosage: 10 MG, QD
     Route: 048
     Dates: start: 20151209, end: 20160321
  6. ELIQUIS [Concomitant]
     Active Substance: APIXABAN
  7. OPSUMIT [Suspect]
     Active Substance: MACITENTAN
     Dosage: 10 MG, QD
     Route: 048
     Dates: start: 20160322
  8. NORVASC [Concomitant]
     Active Substance: AMLODIPINE BESYLATE

REACTIONS (21)
  - Cardiac failure congestive [Unknown]
  - Dizziness [Unknown]
  - Volvulus [Unknown]
  - Oedema peripheral [Unknown]
  - Viral infection [Unknown]
  - Ulcer [Unknown]
  - Dyspnoea exertional [Unknown]
  - Cardiac pacemaker insertion [Unknown]
  - Diarrhoea [Unknown]
  - Headache [Unknown]
  - Heart rate decreased [Unknown]
  - Butterfly rash [Unknown]
  - Periorbital swelling [Unknown]
  - Rhinorrhoea [Unknown]
  - Oropharyngeal pain [Unknown]
  - Fatigue [Unknown]
  - Nasopharyngitis [Unknown]
  - Ascites [Unknown]
  - Erythema [Recovering/Resolving]
  - Rash [Recovered/Resolved]
  - Pneumonia [Unknown]

NARRATIVE: CASE EVENT DATE: 20200501
